FAERS Safety Report 7447554-9 (Version None)
Quarter: 2011Q2

REPORT INFORMATION
  Report Type: 
  Country: None (occurrence: None)
  Receive Date: 20110429
  Receipt Date: 20110125
  Transmission Date: 20111010
  Serious: Yes (Hospitalization)
  Sender: FDA-Public Use
  Company Number: US-ASTRAZENECA-2011SE04696

PATIENT
  Age: 795 Month
  Sex: Female
  Weight: 65.8 kg

DRUGS (5)
  1. NEXIUM [Suspect]
     Indication: GASTROOESOPHAGEAL REFLUX DISEASE
     Route: 048
     Dates: start: 20090101, end: 20110101
  2. MULTI-VITAMINS [Concomitant]
  3. ASPIRIN [Concomitant]
  4. NEXIUM [Suspect]
     Route: 048
     Dates: start: 20110101
  5. SENECOT S [Concomitant]

REACTIONS (4)
  - CARDIAC ENZYMES INCREASED [None]
  - HEART RATE DECREASED [None]
  - DRUG DOSE OMISSION [None]
  - DYSPEPSIA [None]
